FAERS Safety Report 13848788 (Version 2)
Quarter: 2017Q4

REPORT INFORMATION
  Report Type: Report from Study
  Country: None (occurrence: US)
  Receive Date: 20170809
  Receipt Date: 20171115
  Transmission Date: 20180320
  Serious: Yes (Other)
  Sender: FDA-Public Use
  Company Number: US-ABBVIE-17K-163-1878205-00

PATIENT
  Age: 53 Year
  Sex: Female

DRUGS (3)
  1. HUMIRA [Suspect]
     Active Substance: ADALIMUMAB
     Indication: RHEUMATOID ARTHRITIS
     Route: 058
     Dates: start: 20170110, end: 2017
  2. HUMIRA [Suspect]
     Active Substance: ADALIMUMAB
     Indication: HIDRADENITIS
     Route: 058
     Dates: start: 20170303, end: 2017
  3. HUMIRA [Suspect]
     Active Substance: ADALIMUMAB
     Indication: JUVENILE IDIOPATHIC ARTHRITIS
     Route: 058
     Dates: start: 20170801, end: 201709

REACTIONS (17)
  - Fibromyalgia [Unknown]
  - Headache [Unknown]
  - Meniscus injury [Unknown]
  - Respiratory tract congestion [Unknown]
  - Cough [Unknown]
  - Depression [Unknown]
  - Pain in extremity [Unknown]
  - Hyperhidrosis [Unknown]
  - Sneezing [Unknown]
  - Juvenile idiopathic arthritis [Unknown]
  - Arthralgia [Unknown]
  - Herpes zoster [Unknown]
  - Road traffic accident [Unknown]
  - Loss of personal independence in daily activities [Unknown]
  - Injection site bruising [Recovered/Resolved]
  - Drug ineffective [Unknown]
  - Hypersensitivity [Unknown]

NARRATIVE: CASE EVENT DATE: 2017
